FAERS Safety Report 15186387 (Version 1)
Quarter: 2018Q3

REPORT INFORMATION
  Report Type: Report from Study
  Country: US (occurrence: US)
  Receive Date: 20180723
  Receipt Date: 20180723
  Transmission Date: 20181010
  Serious: No
  Sender: FDA-Public Use
  Company Number: US-EXELIXIS-CABO-17011632

PATIENT
  Age: 82 Year
  Sex: Male

DRUGS (22)
  1. LATANOPROST. [Concomitant]
     Active Substance: LATANOPROST
  2. PENICILLIN [Concomitant]
     Active Substance: PENICILLIN
  3. FINASTERIDE. [Concomitant]
     Active Substance: FINASTERIDE
  4. LEVOTHYROXINE. [Concomitant]
     Active Substance: LEVOTHYROXINE
  5. PROCTOZONE [Concomitant]
     Active Substance: HYDROCORTISONE
  6. LISINOPRIL. [Concomitant]
     Active Substance: LISINOPRIL
  7. METOCLOPRAMIDE. [Concomitant]
     Active Substance: METOCLOPRAMIDE
  8. POTASSIUM CHLORIDE. [Concomitant]
     Active Substance: POTASSIUM CHLORIDE
  9. VOTRIENT [Concomitant]
     Active Substance: PAZOPANIB HYDROCHLORIDE
  10. LOPERAMIDE [Concomitant]
     Active Substance: LOPERAMIDE
  11. MAG OXIDE [Concomitant]
     Active Substance: MAGNESIUM OXIDE
  12. TRIAMTERENE. [Concomitant]
     Active Substance: TRIAMTERENE
  13. AFINITOR [Concomitant]
     Active Substance: EVEROLIMUS
  14. ATORVASTATIN [Concomitant]
     Active Substance: ATORVASTATIN
  15. MECLIZINE [Concomitant]
     Active Substance: MECLIZINE HYDROCHLORIDE
  16. PREDNISONE. [Concomitant]
     Active Substance: PREDNISONE
  17. TAMSULOSIN [Concomitant]
     Active Substance: TAMSULOSIN
  18. CABOMETYX [Suspect]
     Active Substance: CABOZANTINIB S-MALATE
     Indication: RENAL CANCER
     Dosage: 60 MG, QD
     Route: 048
     Dates: start: 20160903, end: 20180104
  19. AZITHROMYCIN ANHYDROUS. [Concomitant]
     Active Substance: AZITHROMYCIN ANHYDROUS
  20. ACETAMINOPHEN. [Concomitant]
     Active Substance: ACETAMINOPHEN
  21. AMOXICILLIN. [Concomitant]
     Active Substance: AMOXICILLIN
  22. METOPROLOL. [Concomitant]
     Active Substance: METOPROLOL

REACTIONS (1)
  - Hypoacusis [Unknown]

NARRATIVE: CASE EVENT DATE: 20171206
